FAERS Safety Report 6876771-1 (Version None)
Quarter: 2010Q3

REPORT INFORMATION
  Report Type: 
  Country: None (occurrence: None)
  Receive Date: 20100727
  Receipt Date: 20100720
  Transmission Date: 20110219
  Serious: Yes (Hospitalization)
  Sender: FDA-Public Use
  Company Number: US-ROCHE-703691

PATIENT
  Sex: Male
  Weight: 57.2 kg

DRUGS (10)
  1. BEVACIZUMAB [Suspect]
     Dosage: DOSE: 15MG/KG.
     Route: 042
     Dates: start: 20100326, end: 20100416
  2. ERLOTINIB [Suspect]
     Dosage: FREQUENCY: DAILY
     Route: 048
     Dates: start: 20100326, end: 20100507
  3. MULTI-VITAMIN [Concomitant]
     Dosage: DAILY
  4. ADVAIR DISKUS 100/50 [Concomitant]
     Dosage: 250- 50 MCG 1 PUFF 2 TIMES A DAY
  5. FOLIC ACID [Concomitant]
     Dosage: 1 TAB DAILY
  6. MOBIC [Concomitant]
  7. LEVAQUIN [Concomitant]
     Dosage: FREQUENCY: DAILY
  8. OXYCONTIN [Concomitant]
  9. OXYCONTIN [Concomitant]
     Dosage: OXYCODONE HCL 5 MG OR CAPS 1 -2 TAB OR 4-6 HRS PRN
  10. ZOFRAN [Concomitant]
     Indication: VOMITING
     Dosage: 1 TABLET 3 TIME DAILY AS NEEDED

REACTIONS (2)
  - CHRONIC OBSTRUCTIVE PULMONARY DISEASE [None]
  - DYSPNOEA [None]
